FAERS Safety Report 6522231-7 (Version None)
Quarter: 2009Q4

REPORT INFORMATION
  Report Type: 
  Country: None (occurrence: None)
  Receive Date: 20091229
  Receipt Date: 20091229
  Transmission Date: 20100525
  Serious: Yes (Hospitalization)
  Sender: FDA-Public Use
  Company Number: None

PATIENT
  Age: 84 Year
  Sex: Male
  Weight: 77.6 kg

DRUGS (2)
  1. CARVEDILOL [Suspect]
     Dosage: 25MG PO BID (HOME)
     Route: 048
  2. VERAPAMIL [Suspect]
     Indication: HYPERTENSION
     Dosage: 240MG PO QD (HOME)
     Route: 048

REACTIONS (4)
  - ACUTE MYOCARDIAL INFARCTION [None]
  - BLOOD PRESSURE DECREASED [None]
  - ELECTROCARDIOGRAM T WAVE INVERSION [None]
  - NODAL RHYTHM [None]
